FAERS Safety Report 8186470-4 (Version None)
Quarter: 2012Q1

REPORT INFORMATION
  Report Type: 
  Country: None (occurrence: None)
  Receive Date: 20120305
  Receipt Date: 20120305
  Transmission Date: 20120608
  Serious: Yes (Other)
  Sender: FDA-Public Use
  Company Number: None

PATIENT
  Age: 64 Year
  Sex: Male
  Weight: 90.7194 kg

DRUGS (1)
  1. PROSACEA [Suspect]
     Indication: ROSACEA
     Dosage: TOPICAL GEL DAILY
     Route: 061
     Dates: start: 20111221, end: 20111222

REACTIONS (3)
  - IMPAIRED WORK ABILITY [None]
  - EMOTIONAL DISORDER [None]
  - ERYTHEMA [None]
